FAERS Safety Report 9292301 (Version 1)
Quarter: 2013Q2

REPORT INFORMATION
  Report Type: Spontaneous
  Country: US (occurrence: None)
  Receive Date: 20130515
  Receipt Date: 20130515
  Transmission Date: 20140414
  Serious: Yes (Life-Threatening, Hospitalization, Other)
  Sender: FDA-Public Use
  Company Number: None

PATIENT
  Age: 49 Year
  Sex: Female
  Weight: 83.01 kg

DRUGS (7)
  1. THALITONE [Suspect]
     Indication: HYPERTENSION
     Dosage: 1 TAB
     Route: 048
     Dates: start: 20130421, end: 20130425
  2. OMEPRAZOLE DR [Concomitant]
  3. ALLERGRA-D [Concomitant]
  4. ALBUTEROL HFA [Concomitant]
  5. FLUTICASONE PROPIONATE [Concomitant]
  6. CENTRUM ULTRA WOMEN^S VITAMINS [Concomitant]
  7. GINSANA [Concomitant]

REACTIONS (11)
  - Abdominal discomfort [None]
  - Dizziness [None]
  - Feeling abnormal [None]
  - Blood pressure fluctuation [None]
  - Laboratory test abnormal [None]
  - Blood sodium decreased [None]
  - Blood potassium decreased [None]
  - Cardiac murmur [None]
  - Impaired work ability [None]
  - Asthenia [None]
  - Asthenia [None]
